FAERS Safety Report 5115222-4 (Version None)
Quarter: 2006Q3

REPORT INFORMATION
  Report Type: 
  Country: None (occurrence: None)
  Receive Date: 20060922
  Receipt Date: 20060830
  Transmission Date: 20061208
  Serious: Yes (Hospitalization, Other)
  Sender: FDA-Public Use
  Company Number: 2006108571

PATIENT
  Sex: Male

DRUGS (1)
  1. BEXTRA [Suspect]
     Indication: HEADACHE
     Dates: start: 20040127

REACTIONS (3)
  - ANGINA PECTORIS [None]
  - CARDIAC ARREST [None]
  - COMA [None]
